FAERS Safety Report 17370116 (Version 1)
Quarter: 2020Q1

REPORT INFORMATION
  Report Type: Spontaneous
  Country: US (occurrence: US)
  Receive Date: 20200121
  Receipt Date: 20200121
  Transmission Date: 20200409
  Serious: Yes (Hospitalization)
  Sender: FDA-Public Use
  Company Number: None

PATIENT
  Age: 67 Year
  Sex: Female

DRUGS (15)
  1. VICTOZA [Concomitant]
     Active Substance: LIRAGLUTIDE
  2. BIDL [Concomitant]
  3. LABETALOL [Concomitant]
     Active Substance: LABETALOL\LABETALOL HYDROCHLORIDE
  4. DULOXETINE. [Concomitant]
     Active Substance: DULOXETINE
  5. ROSUVSTATIN [Concomitant]
  6. PANTOPRAZOLE [Concomitant]
     Active Substance: PANTOPRAZOLE
  7. AMITIZA [Concomitant]
     Active Substance: LUBIPROSTONE
  8. LANTUS SOLOS [Concomitant]
  9. HUMALOG KWIK INJ [Concomitant]
  10. FUROSEMIDE. [Concomitant]
     Active Substance: FUROSEMIDE
  11. NITROGLYCERN [Concomitant]
  12. EZETIMBE [Concomitant]
     Active Substance: EZETIMIBE
  13. ACCU CHECK [Concomitant]
  14. REPATHA [Suspect]
     Active Substance: EVOLOCUMAB
     Dosage: ?          OTHER FREQUENCY:1 PEN EVRY 14 DAYS;OTHER ROUTE:INJECTION?
     Dates: start: 20191023
  15. TRAMADOL. [Concomitant]
     Active Substance: TRAMADOL

REACTIONS (1)
  - Myocardial infarction [None]

NARRATIVE: CASE EVENT DATE: 201912
